FAERS Safety Report 20428688 (Version 1)
Quarter: 2022Q1

REPORT INFORMATION
  Report Type: Other
  Country: CN (occurrence: None)
  Receive Date: 20220204
  Receipt Date: 20220204
  Transmission Date: 20220423
  Serious: Yes (Other)
  Sender: FDA-Public Use
  Company Number: CN-ROCHE-3011884

PATIENT

DRUGS (4)
  1. BEVACIZUMAB [Suspect]
     Active Substance: BEVACIZUMAB
     Indication: Rectal cancer
     Dosage: INJECTION; 100 MG/4 ML
     Route: 065
  2. OXALIPLATIN [Suspect]
     Active Substance: OXALIPLATIN
     Indication: Rectal cancer
     Route: 041
  3. FLUOROURACIL [Suspect]
     Active Substance: FLUOROURACIL
     Indication: Rectal cancer
     Dosage: FIRST 400MG/M2, INTRAVENOUS BOLUS, ONCE PER DAY, THEN 2400MG/M2 BY INTRAVENOUS DRIP, DRIP TIME 46 H
     Route: 040
  4. LEUCOVORIN CALCIUM [Suspect]
     Active Substance: LEUCOVORIN CALCIUM
     Indication: Rectal cancer
     Route: 041

REACTIONS (8)
  - Myelosuppression [Unknown]
  - Nausea [Unknown]
  - Neurotoxicity [Unknown]
  - Liver injury [Unknown]
  - Palmar-plantar erythrodysaesthesia syndrome [Unknown]
  - Disease progression [Unknown]
  - Drug ineffective [Unknown]
  - Vomiting [Unknown]
